FAERS Safety Report 6898728-7 (Version None)
Quarter: 2010Q3

REPORT INFORMATION
  Report Type: 
  Country: None (occurrence: None)
  Receive Date: 20100802
  Receipt Date: 20071109
  Transmission Date: 20110219
  Serious: No
  Sender: FDA-Public Use
  Company Number: US-PFIZER INC-2007094851

PATIENT
  Age: 55 Year
  Sex: Female

DRUGS (8)
  1. LYRICA [Suspect]
     Indication: FIBROMYALGIA
  2. ATACAND [Concomitant]
  3. ALL OTHER THERAPEUTIC PRODUCTS [Concomitant]
  4. PROTONIX [Concomitant]
  5. LIPITOR [Concomitant]
  6. TRICOR [Concomitant]
  7. ADVAIR DISKUS 100/50 [Concomitant]
  8. MONTELUKAST SODIUM [Concomitant]

REACTIONS (1)
  - OEDEMA PERIPHERAL [None]
